FAERS Safety Report 19501666 (Version 3)
Quarter: 2021Q3

REPORT INFORMATION
  Report Type: Report from Study
  Country: AT (occurrence: AT)
  Receive Date: 20210707
  Receipt Date: 20210719
  Transmission Date: 20211014
  Serious: Yes (Other)
  Sender: FDA-Public Use
  Company Number: AT-CELGENEUS-AUT-20210700588

PATIENT
  Age: 40 Year
  Sex: Male

DRUGS (16)
  1. PANTOPRAZOLE SODIUM. [Concomitant]
     Active Substance: PANTOPRAZOLE SODIUM
     Indication: GASTROOESOPHAGEAL REFLUX PROPHYLAXIS
     Route: 065
  2. CARFILZOMIB [Suspect]
     Active Substance: CARFILZOMIB
     Route: 041
     Dates: start: 20200831, end: 20200901
  3. PANTOLOC [Concomitant]
     Active Substance: PANTOPRAZOLE SODIUM
     Indication: GASTRITIS PROPHYLAXIS
     Dosage: 40 MILLIGRAM
     Route: 048
     Dates: start: 20200831
  4. CARFILZOMIB [Suspect]
     Active Substance: CARFILZOMIB
     Indication: PLASMA CELL MYELOMA
     Dosage: 78 MILLIGRAM
     Route: 041
     Dates: start: 20200831, end: 20210309
  5. CARFILZOMIB [Suspect]
     Active Substance: CARFILZOMIB
     Route: 041
     Dates: start: 20200831, end: 20200901
  6. LIDAPRIM [Concomitant]
     Indication: PROPHYLAXIS
     Dosage: 800/160 MG
     Route: 048
     Dates: start: 20200831
  7. VIROPEL [Concomitant]
     Indication: ANTIVIRAL PROPHYLAXIS
     Route: 065
  8. G?CSF [Concomitant]
     Active Substance: GRANULOCYTE COLONY-STIMULATING FACTOR NOS
     Indication: HAEMATOPOIETIC STEM CELL MOBILISATION
     Route: 041
     Dates: start: 20201206
  9. G?CSF [Concomitant]
     Active Substance: GRANULOCYTE COLONY-STIMULATING FACTOR NOS
     Indication: APHERESIS
  10. REVLIMID [Suspect]
     Active Substance: LENALIDOMIDE
     Dosage: 25 MILLIGRAM
     Route: 048
     Dates: start: 20200831, end: 20210314
  11. THROMBO ASS [Concomitant]
     Active Substance: ASPIRIN
     Indication: PROPHYLAXIS
     Dosage: 100 MILLIGRAM
     Route: 048
     Dates: start: 20200831
  12. ZARZIO [Concomitant]
     Active Substance: FILGRASTIM
     Indication: HAEMATOPOIETIC STEM CELL MOBILISATION
     Route: 065
  13. CYCLOPHOSPHAMIDE. [Concomitant]
     Active Substance: CYCLOPHOSPHAMIDE
     Indication: HAEMATOPOIETIC STEM CELL MOBILISATION
     Route: 041
     Dates: start: 20201130
  14. CYCLOPHOSPHAMIDE. [Concomitant]
     Active Substance: CYCLOPHOSPHAMIDE
     Indication: APHERESIS
  15. REVLIMID [Suspect]
     Active Substance: LENALIDOMIDE
     Indication: PLASMA CELL MYELOMA
     Dosage: 25 MILLIGRAM
     Route: 048
     Dates: start: 20200831, end: 20210318
  16. DEXAMETHASONE. [Suspect]
     Active Substance: DEXAMETHASONE
     Indication: PLASMA CELL MYELOMA
     Dosage: 40 MILLIGRAM
     Route: 048
     Dates: start: 20200831, end: 20210315

REACTIONS (1)
  - Myeloproliferative neoplasm [Not Recovered/Not Resolved]

NARRATIVE: CASE EVENT DATE: 20210609
